FAERS Safety Report 4939805-7 (Version None)
Quarter: 2006Q1

REPORT INFORMATION
  Report Type: 
  Country: None (occurrence: None)
  Receive Date: 20060307
  Receipt Date: 20060223
  Transmission Date: 20060701
  Serious: Yes (Hospitalization)
  Sender: FDA-Public Use
  Company Number: 2006BI003233

PATIENT
  Age: 57 Year
  Sex: Female
  Weight: 58.0604 kg

DRUGS (4)
  1. AVONEX [Suspect]
     Indication: MULTIPLE SCLEROSIS
     Dosage: 30 UG;QW;IM
     Route: 030
     Dates: start: 19970101, end: 20000101
  2. AVONEX [Suspect]
     Indication: MULTIPLE SCLEROSIS
     Dosage: 30 UG;QW;IM
     Route: 030
     Dates: start: 20050401
  3. METHOTREXATE [Concomitant]
  4. KLONOPIN [Concomitant]

REACTIONS (12)
  - ANOREXIA [None]
  - BLADDER DISORDER [None]
  - DEHYDRATION [None]
  - DISEASE PROGRESSION [None]
  - ENTEROCOCCAL INFECTION [None]
  - GASTROINTESTINAL MOTILITY DISORDER [None]
  - MULTIPLE SCLEROSIS [None]
  - MUSCLE SPASTICITY [None]
  - NAUSEA [None]
  - PSEUDOMONAS INFECTION [None]
  - SLEEP DISORDER [None]
  - VOMITING [None]
